FAERS Safety Report 16012763 (Version 2)
Quarter: 2019Q1

REPORT INFORMATION
  Report Type: Spontaneous
  Country: BR (occurrence: BR)
  Receive Date: 20190227
  Receipt Date: 20190304
  Transmission Date: 20190418
  Serious: Yes (Other)
  Sender: FDA-Public Use
  Company Number: BR-PFIZER INC-2019027363

PATIENT
  Age: 43 Year
  Sex: Female

DRUGS (1)
  1. SAYANA [Suspect]
     Active Substance: MEDROXYPROGESTERONE
     Indication: LEIOMYOMA
     Dosage: ^160^ - IN EVERY 3 MONTHS
     Dates: start: 201901, end: 201901

REACTIONS (5)
  - Product complaint [Recovered/Resolved]
  - Wrong technique in product usage process [Recovered/Resolved]
  - Product use in unapproved indication [Unknown]
  - Incorrect dose administered [Recovered/Resolved]
  - Haemangioma [Not Recovered/Not Resolved]

NARRATIVE: CASE EVENT DATE: 201901
